FAERS Safety Report 6174291-3 (Version None)
Quarter: 2009Q2

REPORT INFORMATION
  Report Type: 
  Country: None (occurrence: None)
  Receive Date: 20090430
  Receipt Date: 20080505
  Transmission Date: 20091009
  Serious: No
  Sender: FDA-Public Use
  Company Number: US-ASTRAZENECA-2008UW09116

PATIENT
  Age: 34 Year
  Sex: Male

DRUGS (2)
  1. NEXIUM [Suspect]
     Indication: GASTROOESOPHAGEAL REFLUX DISEASE
     Route: 048
     Dates: start: 20050101
  2. NEXIUM [Suspect]
     Route: 048
     Dates: start: 20070101

REACTIONS (5)
  - ABDOMINAL DISCOMFORT [None]
  - CARDIAC DISORDER [None]
  - CHEST DISCOMFORT [None]
  - FATIGUE [None]
  - WHEEZING [None]
